FAERS Safety Report 7911760-7 (Version None)
Quarter: 2011Q4

REPORT INFORMATION
  Report Type: 
  Country: None (occurrence: None)
  Receive Date: 20111114
  Receipt Date: 20111114
  Transmission Date: 20120403
  Serious: Yes (Other)
  Sender: FDA-Public Use
  Company Number: None

PATIENT
  Age: 40 Year
  Sex: Female
  Weight: 58.967 kg

DRUGS (1)
  1. MICONAZOLE [Suspect]
     Indication: VULVOVAGINAL MYCOTIC INFECTION
     Dates: start: 20111110, end: 20111111

REACTIONS (4)
  - PRODUCT MEASURED POTENCY ISSUE [None]
  - VULVAL OEDEMA [None]
  - APPLICATION SITE PAIN [None]
  - APPLICATION SITE PRURITUS [None]
